FAERS Safety Report 13971537 (Version 1)
Quarter: 2017Q3

REPORT INFORMATION
  Report Type: Spontaneous
  Country: US (occurrence: None)
  Receive Date: 20170914
  Receipt Date: 20170914
  Transmission Date: 20171128
  Serious: No
  Sender: FDA-Public Use
  Company Number: None

PATIENT
  Age: 79 Year
  Sex: Female

DRUGS (2)
  1. TETRABENAZINE 25MG VALEANT PHARMAS NORTH [Suspect]
     Active Substance: TETRABENAZINE
     Indication: HUNTINGTON^S DISEASE
     Dosage: 1 - 25MG TAB (W/12.5MG) 3 TIMES DAILY BY MOUTH
     Route: 048
     Dates: start: 20160728
  2. TETRABENAZINE 12.5 MG VALEANT PHARMAS NORTH [Suspect]
     Active Substance: TETRABENAZINE
     Indication: HUNTINGTON^S DISEASE
     Dosage: 1 - 12.5MG TAB (W/25MG) 3 TIMES DAILY BY MOUTH
     Route: 048
     Dates: start: 20170127

REACTIONS (2)
  - Hyperhidrosis [None]
  - Tremor [None]

NARRATIVE: CASE EVENT DATE: 20170828
